FAERS Safety Report 13869445 (Version 15)
Quarter: 2018Q4

REPORT INFORMATION
  Report Type: Spontaneous
  Country: GB (occurrence: GB)
  Receive Date: 20170815
  Receipt Date: 20181005
  Transmission Date: 20190204
  Serious: Yes (Death, Other)
  Sender: FDA-Public Use
  Company Number: GB-PFIZER INC-2017352058

PATIENT
  Age: 44 Year
  Sex: Female

DRUGS (2)
  1. PREGABALIN. [Suspect]
     Active Substance: PREGABALIN
     Indication: PAIN
     Dosage: 3 DF, WEEKLY
  2. MORPHINE [Suspect]
     Active Substance: MORPHINE
     Dosage: 6 OR 7

REACTIONS (7)
  - Toxicity to various agents [Fatal]
  - Dysarthria [Unknown]
  - Gait disturbance [Unknown]
  - Eye pain [Unknown]
  - Intentional product misuse [Fatal]
  - Vision blurred [Unknown]
  - Accidental overdose [Fatal]

NARRATIVE: CASE EVENT DATE: 201610
